FAERS Safety Report 7325983 (Version 3)
Quarter: 2013Q2

REPORT INFORMATION
  Report Type: Report from Study
  Country: FR (occurrence: FR)
  Receive Date: 20100319
  Receipt Date: 20130619
  Transmission Date: 20140414
  Serious: Yes (Hospitalization, Other)
  Sender: FDA-Public Use
  Company Number: PHHY2008FR22929

PATIENT
  Age: 80 Year
  Sex: Female

DRUGS (12)
  1. STI571 [Suspect]
     Indication: CHRONIC MYELOID LEUKAEMIA
     Dosage: 400 MG DAILY
     Dates: start: 20100801, end: 20120111
  2. KARDEGIC [Concomitant]
     Dosage: 75 MG, QD
  3. FLECAINE [Concomitant]
     Dosage: 100 MG, QD
  4. VASTEN [Concomitant]
     Dosage: 10 MG, QD
  5. SEROPRAM [Concomitant]
     Dosage: 20 MG, QD
  6. IMOVANE [Concomitant]
     Dosage: 2 DF, DAILY
  7. TARDYFERON [Concomitant]
     Dosage: 80 MG, QD
  8. DI-ANTALVIC [Concomitant]
     Dosage: 6 DF, DAILY
  9. ATENOL [Concomitant]
     Dosage: 25 MG, QD
  10. CACIT D3 [Concomitant]
     Dosage: 1 DF, DAILY
  11. HYDROCORTISONE [Concomitant]
     Dosage: 10 MG 3 DF, DAILY
  12. FLUDROCORTISONE [Concomitant]
     Dosage: 75 MICROGRAMS DAILY

REACTIONS (23)
  - Diarrhoea [Recovered/Resolved]
  - Faeces discoloured [Recovered/Resolved]
  - Pyelonephritis acute [Unknown]
  - Escherichia urinary tract infection [Recovering/Resolving]
  - Confusional state [Unknown]
  - General physical health deterioration [Recovered/Resolved]
  - Culture urine positive [Unknown]
  - Malaise [Unknown]
  - Tremor [Unknown]
  - Chills [Unknown]
  - Pyrexia [Unknown]
  - Irritable bowel syndrome [Recovering/Resolving]
  - Sepsis [Recovered/Resolved]
  - Gastroenteritis [Unknown]
  - Cardiomegaly [Unknown]
  - Vitamin B12 deficiency [Unknown]
  - Anaemia macrocytic [Unknown]
  - Asthenia [Unknown]
  - Inflammation [Unknown]
  - Blood pressure decreased [Unknown]
  - Heart sounds abnormal [Unknown]
  - Flatulence [Unknown]
  - Crepitations [Unknown]
